FAERS Safety Report 18691052 (Version 1)
Quarter: 2021Q1

REPORT INFORMATION
  Report Type: Report from Study
  Country: CA (occurrence: CA)
  Receive Date: 20210101
  Receipt Date: 20210101
  Transmission Date: 20210419
  Serious: Yes (Other)
  Sender: FDA-Public Use
  Company Number: CA-SHIRE-CA202006690

PATIENT
  Sex: Female

DRUGS (37)
  1. VITALUX [Concomitant]
     Active Substance: MINERALS\VITAMINS
     Indication: PRODUCT USED FOR UNKNOWN INDICATION
  2. SALINE KARE [Concomitant]
     Indication: SINUSITIS
     Dosage: UNK UNK, QD
  3. PREDNISONE. [Concomitant]
     Active Substance: PREDNISONE
     Dosage: 750 MILLIGRAM
     Dates: start: 20170728
  4. GAMMAGARD LIQUID [Suspect]
     Active Substance: HUMAN IMMUNOGLOBULIN G
     Indication: PRIMARY IMMUNODEFICIENCY SYNDROME
     Dosage: 50 GRAM, 2 INFUSION SITES
     Route: 065
     Dates: start: 20180801
  5. ZANTAC [Concomitant]
     Active Substance: RANITIDINE HYDROCHLORIDE
     Indication: PRODUCT USED FOR UNKNOWN INDICATION
  6. VITAMIN D3 [Concomitant]
     Active Substance: CHOLECALCIFEROL
     Indication: OSTEOPOROSIS
     Dosage: 1200 MILLIGRAM
  7. MARIJUANA [Concomitant]
     Active Substance: CANNABIS SATIVA SUBSP. INDICA TOP
     Indication: SLEEP DISORDER
     Dosage: 500 MILLIGRAM, TID
  8. AZITHROMYCIN ANHYDROUS. [Concomitant]
     Active Substance: AZITHROMYCIN ANHYDROUS
     Dosage: 500 MILLIGRAM
  9. ACTONEL [Concomitant]
     Active Substance: RISEDRONATE SODIUM
     Indication: PRODUCT USED FOR UNKNOWN INDICATION
  10. MAGNESIUM CITRATE. [Concomitant]
     Active Substance: MAGNESIUM CITRATE
     Indication: MUSCLE SPASMS
     Dosage: UNK UNK, QD
  11. CHONDROITIN [Concomitant]
     Active Substance: CHONDROITIN
     Indication: ARTHRITIS
     Dosage: 400 MILLIGRAM, TID
  12. CANNABIDIOL [Concomitant]
     Active Substance: CANNABIDIOL
     Indication: INFLAMMATION
     Dosage: 1 MILLILITER, QD
  13. PROBIOTIC 10 [Concomitant]
     Active Substance: DIETARY SUPPLEMENT\PROBIOTICS
     Indication: DYSPEPSIA
     Dosage: UNK UNK, QD
  14. AZITHROMYCIN ANHYDROUS. [Concomitant]
     Active Substance: AZITHROMYCIN ANHYDROUS
     Dosage: 250 MILLIGRAM, QD
     Dates: start: 20170331
  15. GLUCOSAMINE [Concomitant]
     Active Substance: GLUCOSAMINE
     Indication: ARTHRITIS
     Dosage: 400 MILLIGRAM, TID
  16. MSM + GLUCOSAMINE [Concomitant]
     Indication: ARTHRITIS
  17. ELTROXIN [Concomitant]
     Active Substance: LEVOTHYROXINE
  18. ZOPICLONE [Concomitant]
     Active Substance: ZOPICLONE
     Indication: PRODUCT USED FOR UNKNOWN INDICATION
  19. VENTOLINE [Concomitant]
     Active Substance: ALBUTEROL
     Indication: PRODUCT USED FOR UNKNOWN INDICATION
  20. HYDROXYCHLOROQUINE [Concomitant]
     Active Substance: HYDROXYCHLOROQUINE
     Indication: RHEUMATOID ARTHRITIS
     Dosage: 400 MILLIGRAM, QD
  21. CEFUROXIME. [Concomitant]
     Active Substance: CEFUROXIME
     Dosage: 500 MILLIGRAM, QD
     Dates: start: 20171030
  22. CELEBREX [Concomitant]
     Active Substance: CELECOXIB
     Indication: PRODUCT USED FOR UNKNOWN INDICATION
  23. ASA [Concomitant]
     Active Substance: ASPIRIN
     Indication: PRODUCT USED FOR UNKNOWN INDICATION
  24. NACL [Concomitant]
     Active Substance: SODIUM CHLORIDE
     Indication: PRODUCT USED FOR UNKNOWN INDICATION
  25. PROLIA [Concomitant]
     Active Substance: DENOSUMAB
     Indication: OSTEOPOROSIS
  26. CURCUMIN [Concomitant]
     Active Substance: CURCUMIN
     Indication: INFLAMMATION
     Dosage: 400 MILLIGRAM, QD
  27. DEXALANT [Concomitant]
     Indication: PRODUCT USED FOR UNKNOWN INDICATION
  28. REACTINE [Concomitant]
     Indication: PRODUCT USED FOR UNKNOWN INDICATION
  29. IRBESARTAN. [Concomitant]
     Active Substance: IRBESARTAN
     Indication: HYPERTENSION
     Dosage: 75 MILLIGRAM, QD
  30. CEFUROXIME. [Concomitant]
     Active Substance: CEFUROXIME
     Dosage: 250 MILLIGRAM
     Dates: start: 20171030
  31. AMLODIPINE [Concomitant]
     Active Substance: AMLODIPINE BESYLATE
     Indication: PRODUCT USED FOR UNKNOWN INDICATION
  32. ALVESTO [Concomitant]
     Indication: PRODUCT USED FOR UNKNOWN INDICATION
  33. VITAMIN B COMPLEX NOS [Concomitant]
     Active Substance: CYANOCOBALAMIN\PYRIDOXINE HYDROCHLORIDE\RIBOFLAVIN\SODIUM PANTOTHENATE\THIAMINE HYDROCHLORIDE\VITAMIN B COMPLEX
     Indication: INFECTION
     Dosage: UNK UNK, QD
  34. CALCIUM [Concomitant]
     Active Substance: CALCIUM
     Indication: OSTEOPOROSIS
     Dosage: 3000 INTERNATIONAL UNIT
  35. OMNARIS [Concomitant]
     Active Substance: CICLESONIDE
     Indication: SINUSITIS
     Dosage: 500 MICROGRAM
  36. LEVOFLOXACIN. [Concomitant]
     Active Substance: LEVOFLOXACIN
     Dosage: 750 MILLIGRAM
     Dates: start: 20170228
  37. PULMICORT TURBUHALER [Concomitant]
     Active Substance: BUDESONIDE
     Indication: SINUSITIS
     Dosage: UNK UNK, BID

REACTIONS (3)
  - Diverticulitis [Unknown]
  - Arthritis [Unknown]
  - Irritable bowel syndrome [Unknown]
